FAERS Safety Report 10255821 (Version 1)
Quarter: 2014Q2

REPORT INFORMATION
  Report Type: Spontaneous
  Country: US (occurrence: US)
  Receive Date: 20140624
  Receipt Date: 20140624
  Transmission Date: 20141212
  Serious: No
  Sender: FDA-Public Use
  Company Number: US-ZOGENIX, INC.-2011ZX000605

PATIENT
  Sex: Female
  Weight: 68.1 kg

DRUGS (7)
  1. SUMAVEL DOSEPRO [Suspect]
     Indication: MIGRAINE
     Dates: start: 201110
  2. TOPAMAX [Concomitant]
     Indication: MIGRAINE
     Route: 048
  3. EFFEXOR [Concomitant]
     Indication: ANTIDEPRESSANT THERAPY
     Route: 048
  4. DEXMETHYLPHENIDATE [Concomitant]
     Indication: DISTURBANCE IN ATTENTION
     Route: 048
  5. CLONAZEPAM [Concomitant]
     Indication: ANXIETY
     Route: 048
  6. TRAMADOL [Concomitant]
     Indication: MIGRAINE
  7. AMBIEN [Concomitant]
     Indication: SLEEP DISORDER
     Route: 048

REACTIONS (1)
  - Injection site pain [Recovered/Resolved]
